FAERS Safety Report 6107430-0 (Version None)
Quarter: 2009Q1

REPORT INFORMATION
  Report Type: 
  Country: None (occurrence: None)
  Receive Date: 20090309
  Receipt Date: 20090225
  Transmission Date: 20090719
  Serious: Yes (Other)
  Sender: FDA-Public Use
  Company Number: CN-PFIZER INC-2009176803

PATIENT

DRUGS (2)
  1. SULPERAZON [Suspect]
     Indication: LUNG INFECTION
     Dosage: 3 G, 3X/DAY
     Dates: start: 20090201
  2. AMIODARONE [Concomitant]

REACTIONS (1)
  - HALLUCINATION, VISUAL [None]
